FAERS Safety Report 7067555-2 (Version None)
Quarter: 2010Q4

REPORT INFORMATION
  Report Type: 
  Country: None (occurrence: None)
  Receive Date: 20101028
  Receipt Date: 20101022
  Transmission Date: 20110411
  Serious: Yes (Other)
  Sender: FDA-Public Use
  Company Number: US-RANBAXY-2010US-39014

PATIENT

DRUGS (2)
  1. FLUCONAZOLE [Suspect]
     Indication: COCCIDIOIDOMYCOSIS
     Dosage: UNK, UNK
     Route: 065
  2. VORICONAZOLE [Concomitant]
     Indication: PRODUCT USED FOR UNKNOWN INDICATION
     Dosage: UNK, UNK
     Route: 065

REACTIONS (3)
  - DRUG TOXICITY [None]
  - MACULAR OEDEMA [None]
  - RETINAL TOXICITY [None]
